FAERS Safety Report 24318942 (Version 1)
Quarter: 2024Q3

REPORT INFORMATION
  Report Type: Spontaneous
  Country: JP (occurrence: JP)
  Receive Date: 20240913
  Receipt Date: 20240913
  Transmission Date: 20241017
  Serious: Yes (Other)
  Sender: BAUSCH AND LOMB
  Company Number: JP-BAUSCH-BL-2024-013790

PATIENT
  Age: 5 Decade
  Sex: Male

DRUGS (4)
  1. BUDESONIDE [Suspect]
     Active Substance: BUDESONIDE
     Indication: Colitis ulcerative
     Route: 048
     Dates: end: 2024
  2. MIRIKIZUMAB [Suspect]
     Active Substance: MIRIKIZUMAB
     Indication: Colitis ulcerative
     Route: 042
     Dates: start: 20240809
  3. MIRIKIZUMAB [Suspect]
     Active Substance: MIRIKIZUMAB
     Route: 042
     Dates: start: 2024
  4. MIRIKIZUMAB [Suspect]
     Active Substance: MIRIKIZUMAB
     Route: 042
     Dates: start: 20240905

REACTIONS (1)
  - Diabetes mellitus [Unknown]

NARRATIVE: CASE EVENT DATE: 20240101
